FAERS Safety Report 16317904 (Version 1)
Quarter: 2019Q2

REPORT INFORMATION
  Report Type: Spontaneous
  Country: GB (occurrence: GB)
  Receive Date: 20190516
  Receipt Date: 20190516
  Transmission Date: 20190711
  Serious: Yes (Death)
  Sender: FDA-Public Use
  Company Number: GB-ROCHE-2317243

PATIENT
  Sex: Female

DRUGS (2)
  1. METHOHEXITONE [Suspect]
     Active Substance: METHOHEXITAL
     Indication: ANAESTHESIA
     Route: 042
  2. DIAZEPAM. [Suspect]
     Active Substance: DIAZEPAM
     Indication: ANAESTHESIA
     Route: 042

REACTIONS (1)
  - Death [Fatal]
